FAERS Safety Report 9593406 (Version 1)
Quarter: 2013Q4

REPORT INFORMATION
  Report Type: Spontaneous
  Country: MX (occurrence: MX)
  Receive Date: 20131004
  Receipt Date: 20131004
  Transmission Date: 20140711
  Serious: Yes (Death)
  Sender: FDA-Public Use
  Company Number: MX-ACTELION-A-CH2013-89223

PATIENT
  Age: 71 Year
  Sex: Female

DRUGS (3)
  1. TRACLEER [Suspect]
     Indication: PULMONARY ARTERIAL HYPERTENSION
     Dosage: 125 MG, BID
     Route: 048
     Dates: start: 2011
  2. SILDENAFIL [Concomitant]
  3. DILTIAZEM [Concomitant]

REACTIONS (3)
  - Lung infection [Fatal]
  - Purulent discharge [Fatal]
  - General physical health deterioration [Not Recovered/Not Resolved]
